FAERS Safety Report 5162172-3 (Version None)
Quarter: 2006Q4

REPORT INFORMATION
  Report Type: 
  Country: None (occurrence: None)
  Receive Date: 20061121
  Receipt Date: 20061110
  Transmission Date: 20070319
  Serious: Yes (Other)
  Sender: FDA-Public Use
  Company Number: 2006125230

PATIENT
  Age: 12 Year
  Sex: Female
  Weight: 49.8957 kg

DRUGS (1)
  1. ZANTAC [Suspect]
     Indication: SKIN PAPILLOMA
     Dosage: 1 TABLET EVERY NIGHT ORAL
     Route: 048
     Dates: start: 20060925, end: 20061005

REACTIONS (4)
  - ABNORMAL BEHAVIOUR [None]
  - CRYING [None]
  - EMOTIONAL DISORDER [None]
  - SUICIDAL IDEATION [None]
